FAERS Safety Report 9226772 (Version 1)
Quarter: 2013Q2

REPORT INFORMATION
  Report Type: Spontaneous
  Country: US (occurrence: None)
  Receive Date: 20130410
  Receipt Date: 20130410
  Transmission Date: 20140414
  Serious: Yes (Hospitalization)
  Sender: FDA-Public Use
  Company Number: None

PATIENT
  Age: 82 Year
  Sex: Male

DRUGS (1)
  1. ERIVEDGE [Suspect]
     Indication: SKIN DISORDER
     Route: 048
     Dates: start: 20130103

REACTIONS (3)
  - Dizziness [None]
  - Asthenia [None]
  - Full blood count decreased [None]
